FAERS Safety Report 19724138 (Version 1)
Quarter: 2021Q3

REPORT INFORMATION
  Report Type: Spontaneous
  Country: US (occurrence: US)
  Receive Date: 20210819
  Receipt Date: 20210819
  Transmission Date: 20211014
  Serious: No
  Sender: FDA-Public Use
  Company Number: US-SA-2021SA273605

PATIENT

DRUGS (3)
  1. SELSUN [Suspect]
     Active Substance: SELENIUM SULFIDE
     Indication: PAIN OF SKIN
  2. SELSUN [Suspect]
     Active Substance: SELENIUM SULFIDE
     Indication: SEBORRHOEIC DERMATITIS
  3. SELSUN [Suspect]
     Active Substance: SELENIUM SULFIDE
     Indication: DRY SKIN

REACTIONS (1)
  - Drug ineffective [Unknown]
